FAERS Safety Report 7525992-3 (Version None)
Quarter: 2011Q2

REPORT INFORMATION
  Report Type: 
  Country: None (occurrence: None)
  Receive Date: 20110606
  Receipt Date: 20090911
  Transmission Date: 20111010
  Serious: Yes (Death, Other)
  Sender: FDA-Public Use
  Company Number: US-BAYER-200933480NA

PATIENT
  Age: 79 Year
  Weight: 73 kg

DRUGS (17)
  1. ALLOPURINOL [Concomitant]
     Dosage: 300 MG, UNK
     Route: 048
     Dates: start: 20040101, end: 20060101
  2. ALBUMIN (HUMAN) [Concomitant]
     Dosage: 250 CC
     Route: 042
     Dates: start: 20060522, end: 20060522
  3. DIGOXIN [Concomitant]
     Dosage: 0.5 MG, UNK
     Route: 042
     Dates: start: 20060522, end: 20060522
  4. TRASYLOL [Suspect]
     Indication: PHLEBECTOMY
  5. AMIODARONE HCL [Concomitant]
     Dosage: 33 ML/HOUR
     Route: 042
     Dates: start: 20060522, end: 20060522
  6. COUMADIN [Concomitant]
     Dosage: UNK
     Route: 048
     Dates: start: 20040101, end: 20060101
  7. NEOSYNEPHRINE [Concomitant]
     Dosage: UNK
     Route: 042
     Dates: start: 20060522, end: 20060522
  8. TRASYLOL [Suspect]
     Indication: COX-MAZE PROCEDURE
     Dosage: 1 ML, INITIAL DOSE
     Route: 042
     Dates: start: 20060522, end: 20060522
  9. TRASYLOL [Suspect]
     Indication: CORONARY ARTERY BYPASS
     Dosage: 200 ML LOADING DOSE
     Route: 042
     Dates: start: 20060522, end: 20060522
  10. LASIX [Concomitant]
     Dosage: 40 MG, UNK
     Route: 048
     Dates: start: 20040101, end: 20060601
  11. LOPRESSOR [Concomitant]
     Dosage: 50 MG, UNK
     Route: 048
     Dates: start: 20040101, end: 20060101
  12. HEPARIN [Concomitant]
     Dosage: 16000 U, UNK
     Route: 042
     Dates: start: 20060522, end: 20060522
  13. TRASYLOL [Suspect]
     Indication: AORTIC VALVE REPLACEMENT
  14. RED BLOOD CELLS [Concomitant]
     Dosage: 2 U, UNK
     Route: 042
     Dates: start: 20060522
  15. ENALAPRIL MALEATE [Concomitant]
     Dosage: 20 MG, UNK
     Route: 048
     Dates: start: 20040101, end: 20060601
  16. MANNITOL [Concomitant]
     Dosage: 25 G, UNK
     Route: 042
     Dates: start: 20060522, end: 20060522
  17. LIPITOR [Concomitant]
     Dosage: 40 MG, UNK
     Route: 048
     Dates: start: 20040101, end: 20060601

REACTIONS (5)
  - RENAL FAILURE ACUTE [None]
  - RENAL FAILURE [None]
  - PAIN [None]
  - INJURY [None]
  - UNEVALUABLE EVENT [None]
